FAERS Safety Report 12256576 (Version 4)
Quarter: 2016Q3

REPORT INFORMATION
  Report Type: Spontaneous
  Country: US (occurrence: US)
  Receive Date: 20160412
  Receipt Date: 20160808
  Transmission Date: 20161109
  Serious: Yes (Congenital Anomaly, Other)
  Sender: FDA-Public Use
  Company Number: US-009507513-1604USA002032

PATIENT
  Age: 0 Day
  Sex: Female
  Weight: 2.35 kg

DRUGS (2)
  1. ISENTRESS [Suspect]
     Active Substance: RALTEGRAVIR POTASSIUM
     Dosage: UNK
     Route: 064
  2. TRUVADA [Suspect]
     Active Substance: EMTRICITABINE\TENOFOVIR DISOPROXIL FUMARATE
     Dosage: UNK
     Route: 064

REACTIONS (6)
  - Cytogenetic abnormality [Unknown]
  - Foetal exposure during pregnancy [Recovered/Resolved]
  - Cleft palate [Unknown]
  - Talipes [Unknown]
  - Heart disease congenital [Unknown]
  - Low birth weight baby [Unknown]

NARRATIVE: CASE EVENT DATE: 20160305
